FAERS Safety Report 13378229 (Version 2)
Quarter: 2017Q2

REPORT INFORMATION
  Report Type: Spontaneous
  Country: ES (occurrence: ES)
  Receive Date: 20170328
  Receipt Date: 20170404
  Transmission Date: 20170830
  Serious: Yes (Death, Hospitalization)
  Sender: FDA-Public Use
  Company Number: ES-MERRIMACK PHARMACEUTICALS, INC.-MER-2017-000063

PATIENT
  Age: 64 Year

DRUGS (1)
  1. ONIVYDE [Suspect]
     Active Substance: IRINOTECAN HYDROCHLORIDE
     Indication: PRODUCT USED FOR UNKNOWN INDICATION
     Dosage: UNK
     Route: 065
     Dates: start: 20161103

REACTIONS (2)
  - Thrombosis [Unknown]
  - Disease progression [Fatal]

NARRATIVE: CASE EVENT DATE: 201611
